FAERS Safety Report 10484070 (Version 1)
Quarter: 2014Q3

REPORT INFORMATION
  Report Type: Spontaneous
  Country: US (occurrence: None)
  Receive Date: 20140923
  Receipt Date: 20140923
  Transmission Date: 20150326
  Serious: Yes (Other)
  Sender: FDA-Public Use
  Company Number: 2014SUN00941

PATIENT
  Age: 64 Year
  Sex: Female
  Weight: 112.4 kg

DRUGS (5)
  1. FUROSEMIDE(FUROSEMIDE) [Concomitant]
  2. BLOOD PRESSURE PILL [Concomitant]
  3. DIVALPROEX SODIUM DR [Suspect]
     Active Substance: DIVALPROEX SODIUM
     Indication: EPILEPSY
     Dates: start: 2012, end: 2012
  4. DEPAKOTE [Suspect]
     Active Substance: DIVALPROEX SODIUM
     Indication: EPILEPSY
     Dates: start: 1970
  5. POTASSIUM [Concomitant]
     Active Substance: POTASSIUM

REACTIONS (3)
  - Product substitution issue [None]
  - Petit mal epilepsy [None]
  - Tremor [None]

NARRATIVE: CASE EVENT DATE: 2012
